FAERS Safety Report 12851252 (Version 1)
Quarter: 2016Q4

REPORT INFORMATION
  Report Type: Report from Study
  Country: CA (occurrence: CA)
  Receive Date: 20161015
  Receipt Date: 20161015
  Transmission Date: 20170207
  Serious: Yes (Other)
  Sender: FDA-Public Use
  Company Number: CA-AMGEN-CANSL2016139514

PATIENT
  Age: 62 Year
  Sex: Female

DRUGS (2)
  1. ATACAND [Concomitant]
     Active Substance: CANDESARTAN CILEXETIL
     Dosage: UNK
  2. XGEVA [Suspect]
     Active Substance: DENOSUMAB
     Indication: METASTASES TO BONE
     Dosage: 120 MG/1.7ML
     Route: 065
     Dates: start: 20130813

REACTIONS (6)
  - Impaired healing [Unknown]
  - Procedural complication [Unknown]
  - Gait disturbance [Unknown]
  - Pain in extremity [Unknown]
  - Off label use [Unknown]
  - Tooth extraction [Unknown]
